FAERS Safety Report 6303148-X (Version None)
Quarter: 2009Q3

REPORT INFORMATION
  Report Type: 
  Country: None (occurrence: None)
  Receive Date: 20090810
  Receipt Date: 20090127
  Transmission Date: 20100115
  Serious: No
  Sender: FDA-Public Use
  Company Number: A0763041A

PATIENT
  Sex: Male

DRUGS (1)
  1. PAXIL CR [Suspect]
     Indication: DRUG USE FOR UNKNOWN INDICATION
     Dosage: 12.5MG PER DAY
     Route: 048

REACTIONS (1)
  - DRUG ADMINISTRATION ERROR [None]
